FAERS Safety Report 5569203-7 (Version None)
Quarter: 2007Q4

REPORT INFORMATION
  Report Type: 
  Country: None (occurrence: None)
  Receive Date: 20071220
  Receipt Date: 20070917
  Transmission Date: 20080405
  Serious: No
  Sender: FDA-Public Use
  Company Number: A0678447A

PATIENT
  Age: 65 Year
  Sex: Male
  Weight: 72.7 kg

DRUGS (2)
  1. AVODART [Suspect]
     Indication: BENIGN PROSTATIC HYPERPLASIA
     Route: 048
  2. UNKNOWN MEDICATION [Concomitant]

REACTIONS (2)
  - RASH [None]
  - URTICARIA [None]
